FAERS Safety Report 9972988 (Version 3)
Quarter: 2014Q2

REPORT INFORMATION
  Report Type: Spontaneous
  Country: US (occurrence: US)
  Receive Date: 20140306
  Receipt Date: 20140421
  Transmission Date: 20141212
  Serious: No
  Sender: FDA-Public Use
  Company Number: US-PFIZER INC-2014062508

PATIENT
  Age: 56 Year
  Sex: Female
  Weight: 82.09 kg

DRUGS (9)
  1. PRISTIQ [Suspect]
     Indication: DEPRESSION
     Dosage: 300 MG (BY TAKING 3 TABLETS OF 100MG AT ONCE), 1X/DAY EVERY MORNING
     Route: 048
     Dates: start: 2010, end: 20140228
  2. PRISTIQ [Suspect]
     Indication: MAJOR DEPRESSION
  3. PRISTIQ [Suspect]
     Indication: POST-TRAUMATIC STRESS DISORDER
  4. ASPIRIN [Concomitant]
     Dosage: UNK, 1X/DAY
  5. VITAMIN D [Concomitant]
     Dosage: UNK, 1X/DAY
  6. PROTONIX [Concomitant]
     Dosage: 40 MG, 2X/DAY
  7. CRESTOR [Concomitant]
     Dosage: 10 MG, 1X/DAY
  8. KLONOPIN [Concomitant]
     Dosage: 0.5 MG, 1X/DAY
  9. FETZIMA [Concomitant]
     Indication: MAJOR DEPRESSION
     Dosage: 80 MG, 1X/DAY
     Dates: start: 20140227

REACTIONS (5)
  - Drug withdrawal syndrome [Recovering/Resolving]
  - Mood swings [Recovering/Resolving]
  - Crying [Recovering/Resolving]
  - Feeling abnormal [Recovering/Resolving]
  - Disturbance in attention [Recovering/Resolving]
